FAERS Safety Report 8233366-5 (Version None)
Quarter: 2012Q1

REPORT INFORMATION
  Report Type: 
  Country: None (occurrence: None)
  Receive Date: 20120323
  Receipt Date: 20120323
  Transmission Date: 20120608
  Serious: No
  Sender: FDA-Public Use
  Company Number: None

PATIENT

DRUGS (2)
  1. METHOTREXATE [Suspect]
     Dosage: INJECTABLE
     Route: 042
  2. METHOTREXATE [Suspect]
     Dosage: INJECTABLE
     Route: 042

REACTIONS (4)
  - MEDICATION ERROR [None]
  - INCORRECT ROUTE OF DRUG ADMINISTRATION [None]
  - PRODUCT COMPOUNDING QUALITY ISSUE [None]
  - DRUG DISPENSING ERROR [None]
